FAERS Safety Report 8770842 (Version 1)
Quarter: 2012Q4

REPORT INFORMATION
  Report Type: Report from Study
  Country: FR (occurrence: FR)
  Receive Date: 20120906
  Receipt Date: 20120906
  Transmission Date: 20130627
  Serious: Yes (Hospitalization)
  Sender: FDA-Public Use
  Company Number: FR-JNJFOC-20120901084

PATIENT
  Age: 8 Year
  Sex: Male
  Weight: 23.8 kg

DRUGS (3)
  1. REMICADE [Suspect]
     Indication: CROHN^S DISEASE
     Route: 042
     Dates: start: 20091213
  2. HUMIRA [Concomitant]
     Dates: start: 20091216
  3. BUDESONIDE [Concomitant]

REACTIONS (1)
  - Crohn^s disease [Recovered/Resolved]
